FAERS Safety Report 17273439 (Version 2)
Quarter: 2020Q1

REPORT INFORMATION
  Report Type: Spontaneous
  Country: US (occurrence: US)
  Receive Date: 20200115
  Receipt Date: 20200131
  Transmission Date: 20200409
  Serious: Yes (Other)
  Sender: FDA-Public Use
  Company Number: US-GLENMARK PHARMACEUTICALS-2020GMK045359

PATIENT

DRUGS (2)
  1. RANITIDINE TABLETS USP, 300 MG [Suspect]
     Active Substance: RANITIDINE HYDROCHLORIDE
     Indication: ULCER HAEMORRHAGE
     Dosage: 300 MG, OD (ONCE AT BED TIME)
     Route: 048
  2. OMEPRAZOLE. [Suspect]
     Active Substance: OMEPRAZOLE
     Indication: OESOPHAGEAL ULCER
     Dosage: 1 DF, OD
     Route: 065
     Dates: start: 201908, end: 201908

REACTIONS (8)
  - Gastric ulcer [Not Recovered/Not Resolved]
  - Fatigue [Not Recovered/Not Resolved]
  - Malaise [Not Recovered/Not Resolved]
  - Recalled product administered [Unknown]
  - Hypokinesia [Unknown]
  - Posture abnormal [Unknown]
  - Anaphylactic shock [Recovered/Resolved]
  - Nausea [Not Recovered/Not Resolved]

NARRATIVE: CASE EVENT DATE: 201908
